FAERS Safety Report 9486663 (Version 3)
Quarter: 2013Q3

REPORT INFORMATION
  Report Type: Report from Study
  Country: US (occurrence: US)
  Receive Date: 20130829
  Receipt Date: 20130830
  Transmission Date: 20140515
  Serious: Yes (Other)
  Sender: FDA-Public Use
  Company Number: US-ROCHE-1246370

PATIENT
  Age: 72 Year
  Sex: Female
  Weight: 64.47 kg

DRUGS (9)
  1. ACTEMRA [Suspect]
     Indication: RHEUMATOID ARTHRITIS
     Dosage: LAST DOSE ADMINISTERED : 25/JUN/2013 (8 MG/KG),  /JUL/2013 (8 MG/KG).?STARTING DOSE: 1/2 DOSE, 5 INF
     Route: 042
     Dates: start: 20130304, end: 20130723
  2. ACTEMRA [Suspect]
     Dosage: 1/2 DOSE
     Route: 042
     Dates: start: 20130625, end: 20130723
  3. PLAQUENIL [Concomitant]
  4. METHOTREXATE [Concomitant]
  5. ENBREL [Concomitant]
  6. REMICADE [Concomitant]
  7. PRAVASTATIN [Concomitant]
     Indication: BLOOD CHOLESTEROL
  8. PRILOSEC [Concomitant]
     Route: 065
  9. PRILOSEC [Concomitant]
     Route: 065
     Dates: start: 20130807

REACTIONS (11)
  - Chest pain [Unknown]
  - Joint swelling [Not Recovered/Not Resolved]
  - Musculoskeletal pain [Recovering/Resolving]
  - Fatigue [Not Recovered/Not Resolved]
  - Pain in extremity [Not Recovered/Not Resolved]
  - Headache [Recovered/Resolved]
  - Tinnitus [Recovered/Resolved]
  - Local swelling [Unknown]
  - Asthenia [Not Recovered/Not Resolved]
  - Constipation [Unknown]
  - Neck pain [Not Recovered/Not Resolved]
